FAERS Safety Report 6155890-1 (Version None)
Quarter: 2009Q2

REPORT INFORMATION
  Report Type: 
  Country: None (occurrence: None)
  Receive Date: 20090415
  Receipt Date: 20090415
  Transmission Date: 20091009
  Serious: Yes (Hospitalization, Other)
  Sender: FDA-Public Use
  Company Number: PHHO2006AU07208

PATIENT
  Sex: Female
  Weight: 67.3 kg

DRUGS (2)
  1. CGS 20267 T30748+ [Suspect]
     Indication: BREAST CANCER
     Dosage: 2.5 MG, QD
     Route: 048
     Dates: start: 20020305
  2. TAMOXIFEN CITRATE [Suspect]
     Dosage: 20 MG, QD
     Dates: end: 20060209

REACTIONS (5)
  - ENDOMETRIAL HYPERTROPHY [None]
  - HYSTEROSCOPY [None]
  - UTERINE DILATION AND CURETTAGE [None]
  - UTERINE POLYP [None]
  - VAGINAL DISCHARGE [None]
